FAERS Safety Report 15516385 (Version 1)
Quarter: 2018Q4

REPORT INFORMATION
  Report Type: Spontaneous
  Country: BE (occurrence: BE)
  Receive Date: 20181017
  Receipt Date: 20181017
  Transmission Date: 20190205
  Serious: Yes (Life-Threatening)
  Sender: FDA-Public Use
  Company Number: BE-MYLANLABS-2018M1077179

PATIENT
  Age: 63 Year
  Sex: Male

DRUGS (2)
  1. DOBUTAMINE [Suspect]
     Active Substance: DOBUTAMINE\DOBUTAMINE HYDROCHLORIDE
     Indication: PULMONARY EMBOLISM
     Route: 065
  2. EPINEPHRINE. [Suspect]
     Active Substance: EPINEPHRINE
     Indication: PULMONARY EMBOLISM
     Route: 065

REACTIONS (1)
  - Drug ineffective [Unknown]
